FAERS Safety Report 11814020 (Version 3)
Quarter: 2015Q4

REPORT INFORMATION
  Report Type: Spontaneous
  Country: JP (occurrence: JP)
  Receive Date: 20151209
  Receipt Date: 20151229
  Transmission Date: 20160305
  Serious: Yes (Life-Threatening, Hospitalization, Other)
  Sender: FDA-Public Use
  Company Number: JP-PFIZER INC-2015419453

PATIENT
  Age: 75 Year
  Sex: Female

DRUGS (2)
  1. NEUROTROPIN [Concomitant]
     Active Substance: NEUROTROPIN
  2. LYRICA [Suspect]
     Active Substance: PREGABALIN
     Indication: POST HERPETIC NEURALGIA
     Dosage: 100 MG, DAILY (25 MG IN THE MORNING, 75 MG IN THE EVENING)
     Route: 048
     Dates: start: 20151028, end: 20151126

REACTIONS (6)
  - Platelet count decreased [Unknown]
  - Hepatic function abnormal [Unknown]
  - Alanine aminotransferase increased [Unknown]
  - Aspartate aminotransferase increased [Unknown]
  - Malaise [Unknown]
  - Nausea [Unknown]

NARRATIVE: CASE EVENT DATE: 20151126
